FAERS Safety Report 7360343-9 (Version None)
Quarter: 2011Q1

REPORT INFORMATION
  Report Type: 
  Country: None (occurrence: None)
  Receive Date: 20110318
  Receipt Date: 20110308
  Transmission Date: 20110831
  Serious: No
  Sender: FDA-Public Use
  Company Number: US-JNJFOC-20110303874

PATIENT
  Sex: Female
  Weight: 67.13 kg

DRUGS (3)
  1. DURAGESIC-50 [Suspect]
     Dosage: NDC: 50458-092-05
     Route: 062
  2. DURAGESIC-50 [Suspect]
     Indication: PAIN
     Route: 062
  3. 5 UNSPECIFIED MEDICATIONS [Concomitant]
     Route: 065

REACTIONS (4)
  - DRUG DOSE OMISSION [None]
  - PAIN [None]
  - WITHDRAWAL SYNDROME [None]
  - DRUG INEFFECTIVE [None]
